FAERS Safety Report 21017014 (Version 1)
Quarter: 2022Q3

REPORT INFORMATION
  Report Type: Spontaneous
  Country: ES (occurrence: ES)
  Receive Date: 20220628
  Receipt Date: 20220628
  Transmission Date: 20221026
  Serious: Yes (Hospitalization)
  Sender: FDA-Public Use
  Company Number: None

PATIENT
  Age: 79 Year
  Sex: Male

DRUGS (12)
  1. METFORMIN [Suspect]
     Active Substance: METFORMIN HYDROCHLORIDE
     Indication: Product used for unknown indication
     Dosage: 1 COMPRIMIDO CADA 12 HORAS (30 COMPRIMIDOS)
     Route: 065
     Dates: start: 20220304
  2. METFORMIN HYDROCHLORIDE [Suspect]
     Active Substance: METFORMIN HYDROCHLORIDE
     Indication: Diabetes mellitus
     Dosage: 1 COMPRIMIDO CADA 12 HORAS
     Route: 065
     Dates: start: 20161114, end: 20220304
  3. DAPAGLIFLOZIN [Suspect]
     Active Substance: DAPAGLIFLOZIN
     Indication: Product used for unknown indication
     Dosage: 1 COMPRIMIDO CADA 12 HORAS (56 COMPRIMIDOS)
     Route: 065
     Dates: start: 20220317, end: 20220321
  4. DUTASTERIDE\TAMSULOSIN [Concomitant]
     Active Substance: DUTASTERIDE\TAMSULOSIN
     Indication: Benign prostatic hyperplasia
     Dosage: 1 CAPSULA CADA D?A (30 C?PSULAS)
     Route: 065
     Dates: start: 20180621
  5. ATORVASTATIN [Concomitant]
     Active Substance: ATORVASTATIN
     Indication: Dyslipidaemia
     Dosage: 1 COMPRIMIDO CADA D?A (30 COMPRIMIDOS)
     Route: 065
     Dates: start: 20220208
  6. LORAZEPAM [Concomitant]
     Active Substance: LORAZEPAM
     Indication: Anxiety
     Dosage: 1 COMPRIMIDO CADA D?A (50 COMPRIMIDOS)
     Route: 065
     Dates: start: 20210913
  7. LINAGLIPTIN [Concomitant]
     Active Substance: LINAGLIPTIN
     Indication: Product used for unknown indication
     Dosage: 1 COMPRIMIDO CADA D?A (30 COMPRIMIDOS)
     Route: 065
     Dates: start: 20210913
  8. CLOPIDOGREL [Concomitant]
     Active Substance: CLOPIDOGREL BISULFATE
     Indication: Transient ischaemic attack
     Dosage: 1 COMPRIMIDO CADA D?A (50 COMPRIMIDOS)
     Route: 065
     Dates: start: 20220225
  9. FUROSEMIDE [Concomitant]
     Active Substance: FUROSEMIDE
     Indication: Oedema
     Dosage: 1 COMPRIMIDO CADA D?A (30 COMPRIMIDOS)
     Route: 065
     Dates: start: 20191021
  10. BRINTELLIX [Concomitant]
     Active Substance: VORTIOXETINE HYDROBROMIDE
     Indication: Anxiety
     Dosage: 1 COMPRIMIDO CADA D?A (RECUBIERTOS CON PELICULA 28 COMPRIMIDOS)
     Route: 065
     Dates: start: 20210913
  11. PANTOPRAZOLE [Concomitant]
     Active Substance: PANTOPRAZOLE
     Indication: Product used for unknown indication
     Dosage: 1 COMPRIMIDO CADA D?A (56 COMPRIMIDOS)
     Route: 065
  12. HYDROCHLOROTHIAZIDE\OLMESARTAN MEDOXOMIL [Concomitant]
     Active Substance: HYDROCHLOROTHIAZIDE\OLMESARTAN MEDOXOMIL
     Indication: Hypertension
     Dosage: COMPRIMIDOS RECUBIERTOS CON PELICULA , 28 COMPRIMIDOS)1 COMPRIMIDO CADA D?A
     Route: 065

REACTIONS (3)
  - Hyperkalaemia [Recovering/Resolving]
  - Acute kidney injury [Recovered/Resolved]
  - Metabolic acidosis [Recovering/Resolving]

NARRATIVE: CASE EVENT DATE: 20220318
